FAERS Safety Report 5078739-7 (Version None)
Quarter: 2006Q3

REPORT INFORMATION
  Report Type: 
  Country: None (occurrence: None)
  Receive Date: 20060808
  Receipt Date: 20060726
  Transmission Date: 20061208
  Serious: Yes (Hospitalization, Other)
  Sender: FDA-Public Use
  Company Number: 2006S1000118

PATIENT
  Age: 52 Year
  Sex: Female
  Weight: 64 kg

DRUGS (12)
  1. CUBICIN [Suspect]
     Indication: ENTEROCOCCAL INFECTION
     Dosage: 6 MG/KG;Q24H;IV
     Route: 042
     Dates: start: 20060518, end: 20060521
  2. CUBICIN [Suspect]
     Indication: OSTEOMYELITIS
     Dosage: 6 MG/KG;Q24H;IV
     Route: 042
     Dates: start: 20060518, end: 20060521
  3. VANCOMYCIN [Concomitant]
  4. LEVOFLOXACIN [Concomitant]
  5. PROMETHAZINE [Concomitant]
  6. VITAMIN B-12 [Concomitant]
  7. SOY ESTROGEN [Concomitant]
  8. VITAMIN B COMPLEX CAP [Concomitant]
  9. EYE ANTIOXIDANT [Concomitant]
  10. FISH OIL [Concomitant]
  11. CALCIUM GLUCONATE [Concomitant]
  12. ASCORBIC ACID [Concomitant]

REACTIONS (10)
  - ANGIONEUROTIC OEDEMA [None]
  - ASTHENIA [None]
  - DRUG ERUPTION [None]
  - EOSINOPHILIA [None]
  - HEPATITIS [None]
  - INTERNATIONAL NORMALISED RATIO INCREASED [None]
  - LEUKOCYTOSIS [None]
  - ORAL INTAKE REDUCED [None]
  - PYREXIA [None]
  - RASH ERYTHEMATOUS [None]
